FAERS Safety Report 4365435-4 (Version None)
Quarter: 2004Q2

REPORT INFORMATION
  Report Type: 
  Country: None (occurrence: None)
  Receive Date: 20040525
  Receipt Date: 20040525
  Transmission Date: 20050107
  Serious: Yes (Hospitalization)
  Sender: FDA-Public Use
  Company Number: None

PATIENT
  Age: 81 Year
  Sex: Female
  Weight: 72.1 kg

DRUGS (7)
  1. VIOXX [Suspect]
     Indication: ARTHRITIS
     Dosage: 12.5 MG PO DAILY
     Route: 048
     Dates: end: 20031210
  2. PREDNISONE [Suspect]
     Indication: POLYMYALGIA
     Dosage: 5 MG PO DAILY/ RESTARTED
     Route: 048
  3. PAXIL [Concomitant]
  4. XANAX [Concomitant]
  5. SYNTHROID [Concomitant]
  6. MAXZIDE [Concomitant]
  7. TAMOXIFEN CITRATE [Concomitant]

REACTIONS (7)
  - ASTHENIA [None]
  - DIARRHOEA [None]
  - GASTRITIS EROSIVE [None]
  - HAEMATEMESIS [None]
  - HIATUS HERNIA [None]
  - MELAENA [None]
  - VOMITING [None]
